FAERS Safety Report 23931114 (Version 1)
Quarter: 2024Q2

REPORT INFORMATION
  Report Type: Report from Study
  Country: DE (occurrence: DE)
  Receive Date: 20240603
  Receipt Date: 20240603
  Transmission Date: 20240716
  Serious: Yes (Other)
  Sender: FDA-Public Use
  Company Number: DE-CELLTRION HEALTHCARE HUNGARY KFT-2021DE006627

PATIENT
  Age: 57 Year
  Sex: Female
  Weight: 59 kg

DRUGS (18)
  1. TRASTUZUMAB [Suspect]
     Active Substance: TRASTUZUMAB
     Indication: Breast cancer
     Dosage: 336 MILLIGRAM
     Route: 041
     Dates: start: 20201210, end: 20210328
  2. TRASTUZUMAB [Suspect]
     Active Substance: TRASTUZUMAB
     Dosage: 336 MILLIGRAM
     Route: 041
     Dates: start: 20210518
  3. PERTUZUMAB [Suspect]
     Active Substance: PERTUZUMAB
     Indication: Breast cancer
     Dosage: 420 MILLIGRAM
     Route: 065
     Dates: start: 20201210, end: 20210328
  4. PERTUZUMAB [Suspect]
     Active Substance: PERTUZUMAB
     Dosage: 420 MILLIGRAM
     Route: 065
     Dates: start: 20210518
  5. ZOLEDRONIC ACID [Suspect]
     Active Substance: ZOLEDRONIC ACID
     Indication: Metastases to bone
     Dosage: UNK UNK, Q4WK (Q4WEEKS, 2ND DOSE ON 16/DEC/2020 AND 3RD DOSE ON 13/JAN/2021. DATE OF LAST DOSE (4 MG
     Route: 065
     Dates: start: 20201118
  6. DOCETAXEL [Suspect]
     Active Substance: DOCETAXEL\DOCETAXEL ANHYDROUS
     Indication: Breast cancer
     Dosage: 120 MILLIGRAM
     Route: 065
     Dates: start: 20201118, end: 20210104
  7. DEXAMETHASONE [Concomitant]
     Active Substance: DEXAMETHASONE
     Dosage: 32 MILLIGRAM
     Route: 048
     Dates: start: 20201117, end: 20210106
  8. DEXAMETHASONE [Concomitant]
     Active Substance: DEXAMETHASONE
     Dosage: 8 MILLIGRAM
     Route: 042
     Dates: start: 20201118, end: 20210104
  9. OMEPRAZOLE [Concomitant]
     Active Substance: DONEPEZIL HYDROCHLORIDE\OMEPRAZOLE\OMEPRAZOLE MAGNESIUM
     Dosage: 20 MILLIGRAM
     Route: 048
     Dates: start: 20210104, end: 20210109
  10. CALCIUM\CHOLECALCIFEROL [Concomitant]
     Active Substance: CALCIUM\CHOLECALCIFEROL
     Dosage: 400 INTERNATIONAL UNIT
     Route: 048
     Dates: start: 20201118
  11. CALCIUM\CHOLECALCIFEROL [Concomitant]
     Active Substance: CALCIUM\CHOLECALCIFEROL
     Dosage: 500 MILLIGRAM
     Route: 048
     Dates: start: 20201118
  12. DIMETHINDENE MALEATE [Concomitant]
     Active Substance: DIMETHINDENE MALEATE
     Dosage: 4 MILLIGRAM
     Route: 042
     Dates: start: 20201118, end: 20210104
  13. Novalgin [Concomitant]
     Dosage: 500 MILLIGRAM
     Route: 048
     Dates: start: 20210104, end: 20210109
  14. ELIQUIS [Concomitant]
     Active Substance: APIXABAN
     Dosage: 5 MG, 0.5 DAY
     Route: 048
     Dates: start: 20210709
  15. BEPANTHEN AUGEN- UND NASENSALBE [Concomitant]
     Dosage: UNK
     Route: 061
     Dates: start: 20210622
  16. Gynomunal [Concomitant]
     Dosage: 2.5 MILLIGRAM
     Route: 061
     Dates: start: 20210208, end: 20210222
  17. SEA SALT [Concomitant]
     Active Substance: SEA SALT
     Dosage: 0.5 DAILY
     Route: 045
     Dates: start: 20211026
  18. BISOPROLOL [Concomitant]
     Active Substance: BISOPROLOL\BISOPROLOL FUMARATE
     Dosage: 2.5 MILLIGRAM, 0.5 DAY
     Route: 048
     Dates: start: 20210709

REACTIONS (10)
  - Atrial fibrillation [Recovered/Resolved]
  - Osteochondrosis [Not Recovered/Not Resolved]
  - Dysgeusia [Recovered/Resolved]
  - Dry skin [Not Recovered/Not Resolved]
  - Vulvovaginal dryness [Recovered/Resolved]
  - Abdominal pain upper [Recovered/Resolved]
  - Anaemia [Recovered/Resolved]
  - Back pain [Not Recovered/Not Resolved]
  - Left ventricular dysfunction [Recovered/Resolved]
  - Underdose [Unknown]

NARRATIVE: CASE EVENT DATE: 20201217
